FAERS Safety Report 4826832-3 (Version None)
Quarter: 2005Q4

REPORT INFORMATION
  Report Type: 
  Country: None (occurrence: None)
  Receive Date: 20051014
  Receipt Date: 20050701
  Transmission Date: 20060501
  Serious: No
  Sender: FDA-Public Use
  Company Number: 2005SP001716

PATIENT
  Age: 78 Year
  Sex: Female
  Weight: 61.2356 kg

DRUGS (4)
  1. LUNESTA [Suspect]
     Indication: INSOMNIA
     Dosage: 2 MG;HS;ORAL
     Route: 048
     Dates: start: 20050629, end: 20050701
  2. DIGITEK [Concomitant]
  3. GLYBURIDE [Concomitant]
  4. WARFARIN [Concomitant]

REACTIONS (5)
  - AFFECT LABILITY [None]
  - ASTHENOPIA [None]
  - DRY MOUTH [None]
  - DYSGEUSIA [None]
  - VISION BLURRED [None]
